FAERS Safety Report 19768296 (Version 7)
Quarter: 2022Q1

REPORT INFORMATION
  Report Type: Report from Study
  Country: CL (occurrence: None)
  Receive Date: 20210831
  Receipt Date: 20220210
  Transmission Date: 20220423
  Serious: Yes (Hospitalization)
  Sender: FDA-Public Use
  Company Number: CL-EISAI MEDICAL RESEARCH-EC-2021-098679

PATIENT
  Age: 55 Year
  Sex: Male
  Weight: 78 kg

DRUGS (12)
  1. LENVATINIB [Suspect]
     Active Substance: LENVATINIB
     Indication: Gastric cancer
     Route: 048
     Dates: start: 20210805, end: 20210817
  2. PEMBROLIZUMAB [Suspect]
     Active Substance: PEMBROLIZUMAB
     Indication: Gastric cancer
     Route: 041
     Dates: start: 20210805, end: 20210805
  3. DOMPERIDONE [Concomitant]
     Active Substance: DOMPERIDONE
     Dates: start: 20190101
  4. RIVAROXABAN [Concomitant]
     Active Substance: RIVAROXABAN
     Dates: start: 20190701
  5. LORAZEPAM [Concomitant]
     Active Substance: LORAZEPAM
     Dates: start: 20200701
  6. PREGABALIN [Concomitant]
     Active Substance: PREGABALIN
     Dates: start: 20200701
  7. MORPHINE [Concomitant]
     Active Substance: MORPHINE
     Dates: start: 20200701
  8. ESCITALOPRAM [Concomitant]
     Active Substance: ESCITALOPRAM OXALATE
     Dates: start: 20210101
  9. BUPRENORPHINE [Concomitant]
     Active Substance: BUPRENORPHINE
     Dates: start: 20210701, end: 20210819
  10. BUPRENORPHINE [Concomitant]
     Active Substance: BUPRENORPHINE
     Dates: start: 20210820
  11. LAX 3350 [Concomitant]
     Dates: start: 20210701
  12. MODAFINIL [Concomitant]
     Active Substance: MODAFINIL
     Dates: start: 20210725

REACTIONS (1)
  - Pancreatitis [Recovered/Resolved]

NARRATIVE: CASE EVENT DATE: 20210820
